FAERS Safety Report 7350275-4 (Version None)
Quarter: 2011Q1

REPORT INFORMATION
  Report Type: 
  Country: None (occurrence: None)
  Receive Date: 20110314
  Receipt Date: 20110307
  Transmission Date: 20110831
  Serious: Yes (Other)
  Sender: FDA-Public Use
  Company Number: CA-ELI_LILLY_AND_COMPANY-CA201103001984

PATIENT
  Sex: Female
  Weight: 61.224 kg

DRUGS (11)
  1. ZYPREXA [Suspect]
     Dosage: 12.5 MG, DAILY (1/D)
     Dates: start: 20070312, end: 20080602
  2. ASPIRIN [Concomitant]
  3. EFFEXOR [Concomitant]
     Dosage: 37.5 MG, DAILY (1/D)
  4. FLUANXOL [Concomitant]
  5. TEGRETOL [Concomitant]
     Dosage: 200 MG, DAILY (1/D)
  6. CLONAZEPAM [Concomitant]
  7. ZYPREXA [Suspect]
     Dosage: 7.5 MG, DAILY (1/D)
     Dates: start: 20050508
  8. LITHIUM CARBONATE [Concomitant]
     Dosage: 300 MG, 2/D
  9. OXYCODONE HCL AND ACETAMINOPHEN [Concomitant]
     Indication: PAIN
     Dosage: 1 D/F, AS NEEDED
  10. ZYPREXA [Suspect]
     Indication: BIPOLAR DISORDER
     Dosage: 1.25 MG, UNK
     Dates: start: 20031105
  11. ZYPREXA [Suspect]
     Dosage: 10.25 MG, DAILY (1/D)
     Dates: start: 20070213

REACTIONS (3)
  - DIABETES MELLITUS [None]
  - CEREBROVASCULAR ACCIDENT [None]
  - HYPERGLYCAEMIA [None]
